FAERS Safety Report 7684060-0 (Version None)
Quarter: 2011Q3

REPORT INFORMATION
  Report Type: 
  Country: None (occurrence: None)
  Receive Date: 20110815
  Receipt Date: 20060512
  Transmission Date: 20111222
  Serious: Yes (Other)
  Sender: FDA-Public Use
  Company Number: DE-BAXTER-2011BH026299

PATIENT
  Age: 6 Week
  Sex: Male
  Weight: 3 kg

DRUGS (5)
  1. METHOHEXITONE [Suspect]
     Indication: INDUCTION OF ANAESTHESIA
     Route: 065
  2. TRAMADOL HCL [Suspect]
     Indication: INDUCTION OF ANAESTHESIA
     Route: 065
  3. ATROPINE [Suspect]
     Indication: INDUCTION OF ANAESTHESIA
     Route: 065
  4. SEVOFLURANE [Suspect]
     Indication: GENERAL ANAESTHESIA
     Route: 055
  5. RINGERS SOLUTION [Concomitant]
     Indication: PRODUCT USED FOR UNKNOWN INDICATION
     Route: 065

REACTIONS (1)
  - ANTICHOLINERGIC SYNDROME [None]
